FAERS Safety Report 7557421-8 (Version None)
Quarter: 2011Q2

REPORT INFORMATION
  Report Type: 
  Country: None (occurrence: None)
  Receive Date: 20110620
  Receipt Date: 20110615
  Transmission Date: 20111010
  Serious: Yes (Death)
  Sender: FDA-Public Use
  Company Number: PHHY2011AU51857

PATIENT
  Sex: Male

DRUGS (2)
  1. EXJADE [Suspect]
     Dosage: 500 MG, DAILY
     Route: 048
     Dates: start: 20110516
  2. EXJADE [Suspect]
     Indication: IRON OVERLOAD
     Dosage: 0.5 DF, QD
     Route: 048
     Dates: start: 20110505

REACTIONS (6)
  - PAIN IN EXTREMITY [None]
  - VOMITING [None]
  - DYSPEPSIA [None]
  - CHEST PAIN [None]
  - GASTROINTESTINAL PAIN [None]
  - DEATH [None]
